FAERS Safety Report 7188883-6 (Version None)
Quarter: 2010Q4

REPORT INFORMATION
  Report Type: 
  Country: None (occurrence: None)
  Receive Date: 20101222
  Receipt Date: 20100728
  Transmission Date: 20110411
  Serious: No
  Sender: FDA-Public Use
  Company Number: US-AMGEN-KDL427562

PATIENT

DRUGS (5)
  1. ENBREL [Suspect]
     Indication: PRODUCT USED FOR UNKNOWN INDICATION
     Dosage: 50 MG, QWK
     Route: 058
     Dates: end: 20100719
  2. FOLIC ACID [Concomitant]
     Dosage: 1 MG, UNK
  3. ISONIAZID [Concomitant]
     Dosage: 300 MG, UNK
  4. IBUPROFEN [Concomitant]
     Dosage: 800 MG, UNK
  5. TOCOPHEROL CONCENTRATE CAP [Concomitant]
     Dosage: 100 IU, UNK

REACTIONS (1)
  - DRUG INEFFECTIVE [None]
